FAERS Safety Report 22635323 (Version 1)
Quarter: 2023Q2

REPORT INFORMATION
  Report Type: Spontaneous
  Country: US (occurrence: US)
  Receive Date: 20230623
  Receipt Date: 20230623
  Transmission Date: 20230722
  Serious: Yes (Hospitalization)
  Sender: FDA-Public Use
  Company Number: US-PFIZER INC-202300226707

PATIENT
  Age: 65 Year
  Sex: Male
  Weight: 90.72 kg

DRUGS (7)
  1. RUXIENCE [Suspect]
     Active Substance: RITUXIMAB-PVVR
     Indication: Rheumatic disorder
     Dosage: UNK
     Dates: start: 202210, end: 202210
  2. RUXIENCE [Suspect]
     Active Substance: RITUXIMAB-PVVR
     Indication: Renal impairment
     Dosage: UNK
     Dates: start: 202210, end: 202210
  3. RUXIENCE [Suspect]
     Active Substance: RITUXIMAB-PVVR
     Dosage: UNK
     Dates: start: 202305, end: 202305
  4. RUXIENCE [Suspect]
     Active Substance: RITUXIMAB-PVVR
     Dosage: UNK
     Dates: start: 202305, end: 202305
  5. TAVNEOS [Concomitant]
     Active Substance: AVACOPAN
     Indication: Renal impairment
     Dosage: 30 MG, 2X/DAY (10MG CAPSULES; TAKES 3 IN THE MORNING AND 3 AT NIGHT)
     Dates: start: 2023
  6. TAVNEOS [Concomitant]
     Active Substance: AVACOPAN
     Indication: Rheumatoid arthritis
  7. LEFLUNOMIDE [Concomitant]
     Active Substance: LEFLUNOMIDE
     Indication: Rheumatoid arthritis
     Dosage: 20 MG, 1X/DAY (IN THE MORNING)
     Dates: start: 202303

REACTIONS (4)
  - Decubitus ulcer [Unknown]
  - Localised infection [Unknown]
  - Weight decreased [Unknown]
  - Illness [Unknown]
